FAERS Safety Report 8672775 (Version 3)
Quarter: 2013Q1

REPORT INFORMATION
  Report Type: Spontaneous
  Country: US (occurrence: US)
  Receive Date: 20120719
  Receipt Date: 20130117
  Transmission Date: 20140127
  Serious: Yes (Hospitalization, Other)
  Sender: FDA-Public Use
  Company Number: US-INCYTE CORPORATION-2012IN001273

PATIENT
  Age: 70 None
  Sex: Male
  Weight: 62.59 kg

DRUGS (7)
  1. JAKAFI [Suspect]
     Indication: MYELOFIBROSIS
     Dosage: 20 MG, BID
     Route: 048
     Dates: start: 20120220
  2. JAKAFI [Suspect]
     Dosage: 20 MG, BID X 5 DAYS
     Route: 048
     Dates: start: 20120410
  3. JAKAFI [Suspect]
     Dosage: 20 MG, QD X 2 DAYS
     Route: 048
     Dates: start: 20120410
  4. JAKAFI [Suspect]
     Dosage: 10 MG, QD FOR ONE WEEK
     Route: 048
     Dates: start: 20120504
  5. JAKAFI [Suspect]
     Dosage: 10 MG, QOD
     Route: 048
     Dates: start: 201205, end: 20120530
  6. JAKAFI [Suspect]
     Dosage: 20 MG, BID
     Dates: end: 20121218
  7. HYDROXYUREA [Concomitant]

REACTIONS (4)
  - Splenomegaly [Recovered/Resolved]
  - Abdominal pain [Recovered/Resolved]
  - Platelet count decreased [Unknown]
  - Anaemia [Unknown]
